FAERS Safety Report 12666902 (Version 1)
Quarter: 2016Q3

REPORT INFORMATION
  Report Type: Spontaneous
  Country: US (occurrence: None)
  Receive Date: 20160818
  Receipt Date: 20160818
  Transmission Date: 20161109
  Serious: Yes (Life-Threatening, Other)
  Sender: FDA-Public Use
  Company Number: None

PATIENT
  Age: 66 Year
  Sex: Female

DRUGS (1)
  1. NORCO [Suspect]
     Active Substance: ACETAMINOPHEN\HYDROCODONE BITARTRATE
     Indication: SKIN ULCER

REACTIONS (4)
  - Throat tightness [None]
  - Product quality issue [None]
  - Movement disorder [None]
  - Dyspnoea [None]

NARRATIVE: CASE EVENT DATE: 20160707
